FAERS Safety Report 12009272 (Version 1)
Quarter: 2016Q1

REPORT INFORMATION
  Report Type: Spontaneous
  Country: US (occurrence: US)
  Receive Date: 20160205
  Receipt Date: 20160205
  Transmission Date: 20160526
  Serious: No
  Sender: FDA-Public Use
  Company Number: US-ZYDUS-010002

PATIENT

DRUGS (1)
  1. BUPROPION/BUPROPION HYDROCHLORIDE [Suspect]
     Active Substance: BUPROPION HYDROCHLORIDE

REACTIONS (1)
  - Adverse drug reaction [Not Recovered/Not Resolved]
